FAERS Safety Report 7204310-4 (Version None)
Quarter: 2010Q4

REPORT INFORMATION
  Report Type: 
  Country: None (occurrence: None)
  Receive Date: 20101230
  Receipt Date: 20101224
  Transmission Date: 20110411
  Serious: Yes (Other)
  Sender: FDA-Public Use
  Company Number: JP-ROCHE-750331

PATIENT
  Sex: Male

DRUGS (36)
  1. TOCILIZUMAB [Suspect]
     Indication: CASTLEMAN'S DISEASE
     Route: 042
     Dates: start: 20081031, end: 20090306
  2. TOCILIZUMAB [Suspect]
     Route: 042
     Dates: start: 20090319, end: 20100104
  3. TOCILIZUMAB [Suspect]
     Route: 042
     Dates: start: 20100114, end: 20101202
  4. TOLBUTAMIDE [Suspect]
     Indication: DIABETES MELLITUS
     Route: 048
  5. PREDONINE [Concomitant]
     Route: 048
     Dates: start: 20090530, end: 20090602
  6. PREDONINE [Concomitant]
     Route: 048
     Dates: start: 20090613, end: 20090616
  7. PREDONINE [Concomitant]
     Route: 048
     Dates: start: 20090627, end: 20090630
  8. PREDONINE [Concomitant]
     Route: 048
     Dates: start: 20090711, end: 20090714
  9. PREDONINE [Concomitant]
     Route: 048
     Dates: start: 20090725, end: 20090728
  10. PREDONINE [Concomitant]
     Route: 048
     Dates: start: 20090808, end: 20090811
  11. PREDONINE [Concomitant]
     Route: 048
     Dates: start: 20090822, end: 20090825
  12. PREDONINE [Concomitant]
     Route: 048
     Dates: start: 20090905, end: 20090908
  13. PREDONINE [Concomitant]
     Route: 048
     Dates: start: 20090919, end: 20090922
  14. PREDONINE [Concomitant]
     Route: 048
     Dates: start: 20091003, end: 20091006
  15. PREDONINE [Concomitant]
     Route: 048
     Dates: start: 20091017, end: 20091020
  16. PREDONINE [Concomitant]
     Route: 048
     Dates: start: 20091030, end: 20091102
  17. PREDONINE [Concomitant]
     Route: 048
     Dates: start: 20091113, end: 20091116
  18. PREDONINE [Concomitant]
     Route: 048
     Dates: start: 20091127, end: 20091130
  19. PREDONINE [Concomitant]
     Route: 048
     Dates: start: 20091211, end: 20091214
  20. PREDONINE [Concomitant]
     Route: 048
     Dates: start: 20100115, end: 20100118
  21. PREDONINE [Concomitant]
     Route: 048
     Dates: start: 20100205, end: 20100208
  22. PREDONINE [Concomitant]
     Route: 048
     Dates: start: 20100305, end: 20100308
  23. PREDONINE [Concomitant]
     Route: 048
     Dates: start: 20100319, end: 20100322
  24. PREDONINE [Concomitant]
     Route: 048
     Dates: start: 20100402, end: 20100405
  25. PREDONINE [Concomitant]
     Route: 048
     Dates: start: 20100414, end: 20100417
  26. PREDONINE [Concomitant]
     Route: 048
     Dates: start: 20100429, end: 20100502
  27. PREDONINE [Concomitant]
     Route: 048
     Dates: start: 20100514, end: 20100517
  28. PREDONINE [Concomitant]
     Route: 048
     Dates: start: 20100528, end: 20100531
  29. PREDONINE [Concomitant]
     Route: 048
     Dates: start: 20100611, end: 20100614
  30. PREDONINE [Concomitant]
     Route: 048
     Dates: start: 20100625, end: 20100628
  31. PREDONINE [Concomitant]
     Route: 048
     Dates: start: 20100709, end: 20100712
  32. PREDONINE [Concomitant]
     Route: 048
     Dates: start: 20100723, end: 20100726
  33. PREDONINE [Concomitant]
     Route: 048
     Dates: start: 20100806, end: 20100809
  34. PREDONINE [Concomitant]
     Route: 048
     Dates: start: 20100827, end: 20100830
  35. PREDONINE [Concomitant]
     Route: 048
     Dates: start: 20100910, end: 20100913
  36. PREDONINE [Concomitant]
     Route: 048
     Dates: start: 20100924, end: 20100927

REACTIONS (8)
  - ANTIBODY TEST POSITIVE [None]
  - AZOTAEMIA [None]
  - BLOOD URIC ACID INCREASED [None]
  - HYPERKALAEMIA [None]
  - HYPERTENSION [None]
  - HYPERTRIGLYCERIDAEMIA [None]
  - HYPOGLYCAEMIA [None]
  - RENAL IMPAIRMENT [None]
